FAERS Safety Report 8170012-3 (Version None)
Quarter: 2012Q1

REPORT INFORMATION
  Report Type: 
  Country: None (occurrence: None)
  Receive Date: 20120228
  Receipt Date: 20120224
  Transmission Date: 20120608
  Serious: Yes (Other)
  Sender: FDA-Public Use
  Company Number: US-PURDUE-USA-2012-0082158

PATIENT
  Age: 50 Year
  Sex: Male
  Weight: 81 kg

DRUGS (5)
  1. ROXICODONE [Suspect]
     Indication: PRODUCT USED FOR UNKNOWN INDICATION
     Dosage: UNK
  2. OXYCONTIN [Suspect]
     Dosage: 30 MG, 5/DAY
  3. OXYCONTIN [Suspect]
     Indication: BACK PAIN
     Dosage: 20 MG, BID
  4. OXYCODONE HCL [Suspect]
     Indication: PRODUCT USED FOR UNKNOWN INDICATION
  5. OXYCONTIN [Suspect]
     Dosage: 80 MG, 5/DAY

REACTIONS (1)
  - SURGERY [None]
